FAERS Safety Report 21027083 (Version 1)
Quarter: 2022Q2

REPORT INFORMATION
  Report Type: Spontaneous
  Country: US (occurrence: US)
  Receive Date: 20220630
  Receipt Date: 20220630
  Transmission Date: 20220721
  Serious: Yes (Hospitalization, Other)
  Sender: FDA-Public Use
  Company Number: US-Accord-267444

PATIENT
  Sex: Female
  Weight: 68.04 kg

DRUGS (3)
  1. PRASUGREL [Suspect]
     Active Substance: PRASUGREL
     Indication: Anticoagulant therapy
     Dosage: STRENGTH: 10 MG, ONCE DAILY?TABLET
     Route: 048
     Dates: start: 202202
  2. TYLENOL [Concomitant]
     Active Substance: ACETAMINOPHEN
     Indication: Pain
     Dosage: AS NEEDED
     Route: 048
  3. ASPIRIN [Concomitant]
     Active Substance: ASPIRIN

REACTIONS (8)
  - Pain in extremity [Not Recovered/Not Resolved]
  - Peripheral swelling [Not Recovered/Not Resolved]
  - Blister [Not Recovered/Not Resolved]
  - Device occlusion [Unknown]
  - Haemorrhoidal haemorrhage [Unknown]
  - Gait disturbance [Not Recovered/Not Resolved]
  - Chills [Not Recovered/Not Resolved]
  - Fatigue [Not Recovered/Not Resolved]

NARRATIVE: CASE EVENT DATE: 20220401
